FAERS Safety Report 5018934-6 (Version None)
Quarter: 2006Q2

REPORT INFORMATION
  Report Type: 
  Country: None (occurrence: None)
  Receive Date: 20060531
  Receipt Date: 20060517
  Transmission Date: 20061013
  Serious: Yes (Other)
  Sender: FDA-Public Use
  Company Number: 222319

PATIENT
  Age: 21 Year
  Sex: Male
  Weight: 78.9 kg

DRUGS (2)
  1. RAPTIVA [Suspect]
     Indication: PSORIASIS
     Dosage: 52.5 MG, SINGLE   75 MG, 1/WEEK
     Dates: start: 20051101
  2. CLOBEX [Concomitant]

REACTIONS (8)
  - ANAEMIA [None]
  - ANXIETY [None]
  - ARTHRALGIA [None]
  - INFLAMMATION [None]
  - MYALGIA [None]
  - PLATELET COUNT INCREASED [None]
  - SKIN DISORDER [None]
  - WHITE BLOOD CELL COUNT INCREASED [None]
